FAERS Safety Report 8738763 (Version 2)
Quarter: 2012Q4

REPORT INFORMATION
  Report Type: 
  Country: PE (occurrence: PE)
  Receive Date: 20120823
  Receipt Date: 20120830
  Transmission Date: 20130627
  Serious: Yes (Death)
  Sender: FDA-Public Use
  Company Number: PE-PFIZER INC-2012206037

PATIENT
  Age: 87 Year
  Sex: Female

DRUGS (2)
  1. ACCUPRIL [Suspect]
     Indication: HYPERTENSION
     Dosage: UNK
     Route: 048
  2. ATENOLOL [Concomitant]
     Dosage: UNK
     Route: 048

REACTIONS (1)
  - Cerebrovascular accident [Fatal]
